FAERS Safety Report 17222385 (Version 1)
Quarter: 2020Q1

REPORT INFORMATION
  Report Type: Spontaneous
  Country: FR (occurrence: FR)
  Receive Date: 20200101
  Receipt Date: 20200101
  Transmission Date: 20200409
  Serious: Yes (Hospitalization)
  Sender: FDA-Public Use
  Company Number: FR-BAXTER-2019BAX026270

PATIENT
  Age: 71 Year
  Sex: Female
  Weight: 61 kg

DRUGS (3)
  1. MYOCET [Suspect]
     Active Substance: DOXORUBICIN
     Indication: ENDOMETRIAL CANCER
     Dosage: 80 MG/TREATMENT
     Route: 042
     Dates: start: 20190418, end: 20191024
  2. DOXORUBICIN [Suspect]
     Active Substance: DOXORUBICIN
     Indication: ENDOMETRIAL CANCER
     Dosage: 32 MG D1D2D3/TREATMENT
     Route: 042
     Dates: start: 20161213, end: 20170310
  3. ENDOXAN 1000 MG, POUDRE POUR SOLUTIONINJECTABLE [Suspect]
     Active Substance: CYCLOPHOSPHAMIDE
     Indication: ENDOMETRIAL CANCER
     Dosage: 800 MG/TREATMENT
     Route: 042
     Dates: start: 20190418, end: 20191024

REACTIONS (4)
  - Congestive cardiomyopathy [Unknown]
  - Dyspnoea exertional [Unknown]
  - Cardiac failure [Unknown]
  - Hypotension [Unknown]

NARRATIVE: CASE EVENT DATE: 20191024
